FAERS Safety Report 9543033 (Version 1)
Quarter: 2013Q2

REPORT INFORMATION
  Report Type: Spontaneous
  Country: US (occurrence: None)
  Receive Date: 20130524
  Receipt Date: 20130524
  Transmission Date: 20140414
  Serious: No
  Sender: FDA-Public Use
  Company Number: PHEH2012US025629

PATIENT
  Sex: Female

DRUGS (1)
  1. GILENYA ( FINGOLIMOD) CAPSULE, 0.5 MG [Suspect]
     Indication: MULTIPLE SCLEROSIS
     Dates: start: 20120509

REACTIONS (2)
  - Oropharyngeal pain [None]
  - Nasopharyngitis [None]
